FAERS Safety Report 24668443 (Version 2)
Quarter: 2025Q2

REPORT INFORMATION
  Report Type: Spontaneous
  Country: CN (occurrence: CN)
  Receive Date: 20241127
  Receipt Date: 20250619
  Transmission Date: 20250716
  Serious: Yes (Hospitalization)
  Sender: STRIDES
  Company Number: CN-STRIDES ARCOLAB LIMITED-2024SP015138

PATIENT
  Age: 46 Year
  Sex: Female
  Weight: 70 kg

DRUGS (3)
  1. ZOLPIDEM [Suspect]
     Active Substance: ZOLPIDEM TARTRATE
     Indication: Insomnia
     Route: 065
     Dates: start: 2015
  2. ZOLPIDEM [Suspect]
     Active Substance: ZOLPIDEM TARTRATE
     Route: 065
     Dates: start: 2021
  3. ZOLPIDEM [Suspect]
     Active Substance: ZOLPIDEM TARTRATE
     Route: 065

REACTIONS (16)
  - Tension [Recovering/Resolving]
  - Disturbance in attention [Unknown]
  - Memory impairment [Unknown]
  - Impaired work ability [Recovering/Resolving]
  - Palpitations [Recovering/Resolving]
  - Tachycardia [Recovering/Resolving]
  - Intentional product use issue [Unknown]
  - Drug withdrawal syndrome [Recovering/Resolving]
  - Drug dependence [Recovering/Resolving]
  - Insomnia [Recovering/Resolving]
  - Anxiety disorder [Recovering/Resolving]
  - Toxicity to various agents [Unknown]
  - Intentional product misuse [Unknown]
  - Somnolence [Unknown]
  - Euphoric mood [Recovering/Resolving]
  - Increased appetite [Unknown]

NARRATIVE: CASE EVENT DATE: 20210101
